FAERS Safety Report 7095382-9 (Version None)
Quarter: 2010Q4

REPORT INFORMATION
  Report Type: 
  Country: None (occurrence: None)
  Receive Date: 20101111
  Receipt Date: 20101105
  Transmission Date: 20110411
  Serious: Yes (Death)
  Sender: FDA-Public Use
  Company Number: US-CELGENEUS-163-21880-10110943

PATIENT
  Age: 75 Year
  Sex: Male

DRUGS (10)
  1. REVLIMID [Suspect]
     Indication: MYELODYSPLASTIC SYNDROME
     Route: 048
     Dates: start: 20101012, end: 20101102
  2. EXJADE [Concomitant]
     Route: 065
  3. OMEPRAZOLE [Concomitant]
     Route: 065
  4. GABAPENTIN [Concomitant]
     Route: 065
  5. MORPHINE [Concomitant]
     Route: 048
  6. LORAZEPAM [Concomitant]
     Route: 065
  7. PEGFILGRASTIM [Concomitant]
     Route: 065
  8. PROPRANOLOL [Concomitant]
     Route: 065
  9. FINASTERIDE [Concomitant]
     Route: 065
  10. ZOCOR [Concomitant]
     Route: 065

REACTIONS (1)
  - DEATH [None]
